FAERS Safety Report 18812709 (Version 1)
Quarter: 2021Q1

REPORT INFORMATION
  Report Type: Spontaneous
  Country: NO (occurrence: NO)
  Receive Date: 20210131
  Receipt Date: 20210131
  Transmission Date: 20210419
  Serious: Yes (Other)
  Sender: FDA-Public Use
  Company Number: NO-JNJFOC-20210146726

PATIENT
  Age: 90 Year
  Sex: Female

DRUGS (9)
  1. PANODIL [Concomitant]
     Active Substance: ACETAMINOPHEN
     Indication: PAIN
     Route: 048
     Dates: start: 20200812
  2. KALCIPOS D [Concomitant]
     Active Substance: CALCIUM CARBONATE\CHOLECALCIFEROL
     Dosage: 500 MG/800 IE X 1
     Route: 048
     Dates: start: 20200805
  3. ACLASTA [Concomitant]
     Active Substance: ZOLEDRONIC ACID
     Indication: OSTEOPOROSIS
     Dosage: 5MG/100 ONCE A YEAR
     Route: 042
     Dates: start: 20200812
  4. TRIOBE [CYANOCOBALAMIN;FOLIC ACID;PYRIDOXINE] [Concomitant]
     Indication: VITAMIN B12 DEFICIENCY
     Dosage: 1 TABLET
     Route: 048
     Dates: start: 20200129
  5. HIPREX [METHENAMINE HIPPURATE] [Concomitant]
     Indication: URINARY TRACT DISORDER PROPHYLAXIS
     Route: 048
     Dates: start: 20201014
  6. DUROFERON [Concomitant]
     Active Substance: FERROUS SULFATE
     Indication: IRON DEFICIENCY
     Dosage: 100 MG, BID
     Route: 048
     Dates: start: 20201109
  7. XARELTO [Suspect]
     Active Substance: RIVAROXABAN
     Indication: PROPHYLAXIS
     Dosage: 15 MG, QD
     Route: 048
     Dates: start: 20201125
  8. COVID?19 VACCINE NOS. [Suspect]
     Active Substance: COVID-19 VACCINE NOS
     Indication: IMMUNISATION
     Dosage: DOSE NO. IN SERIES: 1 VACCINATION SITE: LEFT ARM. VACCINATION TIME: :10:00
     Route: 030
     Dates: start: 20210113
  9. CIPRALEX [Concomitant]
     Active Substance: ESCITALOPRAM OXALATE
     Indication: DEPRESSION
     Route: 048
     Dates: start: 20200624

REACTIONS (2)
  - Treatment failure [Recovering/Resolving]
  - Transient ischaemic attack [Recovering/Resolving]

NARRATIVE: CASE EVENT DATE: 20210113
